FAERS Safety Report 4581448-1 (Version None)
Quarter: 2005Q1

REPORT INFORMATION
  Report Type: 
  Country: None (occurrence: None)
  Receive Date: 20050214
  Receipt Date: 20050204
  Transmission Date: 20050727
  Serious: Yes (Hospitalization, Disabling)
  Sender: FDA-Public Use
  Company Number: US-ROCHE-394796

PATIENT
  Sex: Male

DRUGS (1)
  1. ACCUTANE [Suspect]
     Indication: ACNE
     Route: 048

REACTIONS (9)
  - ANHEDONIA [None]
  - ANXIETY [None]
  - CONCOMITANT DISEASE AGGRAVATED [None]
  - DEPRESSION [None]
  - ILL-DEFINED DISORDER [None]
  - INTERNAL INJURY [None]
  - MENTAL DISORDER [None]
  - RENAL FAILURE ACUTE [None]
  - RENAL TRANSPLANT [None]
